FAERS Safety Report 6554163-2 (Version None)
Quarter: 2010Q1

REPORT INFORMATION
  Report Type: 
  Country: None (occurrence: None)
  Receive Date: 20100122
  Receipt Date: 20100107
  Transmission Date: 20100710
  Serious: Yes (Other)
  Sender: FDA-Public Use
  Company Number: DSU-2010-00068

PATIENT
  Age: 69 Year
  Sex: Female

DRUGS (13)
  1. BENICAR [Suspect]
     Indication: DRUG USE FOR UNKNOWN INDICATION
     Dosage: 20 MG (20 MG, QD), PER ORAL
     Route: 048
     Dates: start: 20091014
  2. MULTAQ [Suspect]
     Indication: ATRIAL FIBRILLATION
     Dosage: 800 MG (400 MG, BID), PER ORAL
     Route: 048
     Dates: start: 20091014
  3. COREG [Suspect]
     Indication: DRUG USE FOR UNKNOWN INDICATION
     Dosage: 12.5 MG (6.25 MG, BID), PER ORAL
     Route: 048
     Dates: start: 20091014
  4. CARDIZEM [Suspect]
     Indication: DRUG USE FOR UNKNOWN INDICATION
     Dosage: 240 MG (240 MG, QD), PER ORAL
     Route: 048
     Dates: start: 20091014
  5. MAG-OX (MAGNESIUM OXIDE) (MAGNESIUM OXIDE) [Concomitant]
  6. GLUCOSAMINE (GLUCOSAMINE) (GLUCOSAMINE) [Concomitant]
  7. CRESTOR [Concomitant]
  8. ACTOS (PIOGLITAZONE) (PIOGLITAZONE) [Concomitant]
  9. INSULIN (INSULIN) (INSULIN) [Concomitant]
  10. COENZYME Q10 (UBIDECARENONE) (UBIDECARENONE) [Concomitant]
  11. MAXZIDE HYDROCHLOROTHIAZIDE, TRIAMTERENE) (HYDROCHLOROTHIAZIDE, TRIAMT [Concomitant]
  12. COUMADIN [Concomitant]
  13. ASPIRIN [Concomitant]

REACTIONS (7)
  - ATRIAL FIBRILLATION [None]
  - CARDIAC DISORDER [None]
  - DIARRHOEA [None]
  - FEELING ABNORMAL [None]
  - OEDEMA PERIPHERAL [None]
  - RHINORRHOEA [None]
  - WHEEZING [None]
